FAERS Safety Report 6189091-8 (Version None)
Quarter: 2009Q2

REPORT INFORMATION
  Report Type: 
  Country: None (occurrence: None)
  Receive Date: 20090513
  Receipt Date: 20090507
  Transmission Date: 20091009
  Serious: Yes (Other)
  Sender: FDA-Public Use
  Company Number: DE-WYE-G02957009

PATIENT
  Sex: Female

DRUGS (1)
  1. TREVILOR [Suspect]
     Dosage: UNKNOWN
     Route: 048
     Dates: start: 20080601

REACTIONS (1)
  - ACUTE LYMPHOCYTIC LEUKAEMIA [None]
